FAERS Safety Report 5696191-5 (Version None)
Quarter: 2008Q2

REPORT INFORMATION
  Report Type: 
  Country: None (occurrence: None)
  Receive Date: 20080407
  Receipt Date: 20080326
  Transmission Date: 20081010
  Serious: Yes (Hospitalization, Other)
  Sender: FDA-Public Use
  Company Number: US-AMGEN-QUU267293

PATIENT
  Sex: Female

DRUGS (5)
  1. ENBREL [Suspect]
     Indication: PSORIASIS
     Route: 058
     Dates: start: 20051001
  2. VITAMINS [Concomitant]
     Dates: start: 20051220
  3. ALBUTEROL [Concomitant]
  4. IRON [Concomitant]
  5. VITAMIN TAB [Concomitant]

REACTIONS (14)
  - CEPHALO-PELVIC DISPROPORTION [None]
  - CHEST PAIN [None]
  - ESCHERICHIA URINARY TRACT INFECTION [None]
  - FAILED INDUCTION OF LABOUR [None]
  - HEADACHE [None]
  - JOINT SPRAIN [None]
  - LIP SWELLING [None]
  - NAUSEA [None]
  - OEDEMA PERIPHERAL [None]
  - PAPILLOMA VIRAL INFECTION [None]
  - PLACENTA PRAEVIA [None]
  - PREGNANCY INDUCED HYPERTENSION [None]
  - VAGINAL CANDIDIASIS [None]
  - VULVOVAGINITIS TRICHOMONAL [None]
